FAERS Safety Report 7547786-5 (Version None)
Quarter: 2011Q2

REPORT INFORMATION
  Report Type: 
  Country: None (occurrence: None)
  Receive Date: 20110615
  Receipt Date: 20110610
  Transmission Date: 20111010
  Serious: Yes (Death, Hospitalization, Other)
  Sender: FDA-Public Use
  Company Number: US-BRISTOL-MYERS SQUIBB COMPANY-15717721

PATIENT
  Age: 38 Year
  Sex: Female

DRUGS (4)
  1. ATIVAN [Concomitant]
  2. ARIXTRA [Concomitant]
  3. YERVOY [Suspect]
     Dosage: 3 MG/KG OVER 90MINS
     Dates: start: 20110420
  4. MEGACE [Concomitant]

REACTIONS (5)
  - DEEP VEIN THROMBOSIS [None]
  - NEOPLASM MALIGNANT [None]
  - ASCITES [None]
  - PULMONARY EMBOLISM [None]
  - PAIN [None]
